FAERS Safety Report 7434051-X (Version None)
Quarter: 2011Q2

REPORT INFORMATION
  Report Type: 
  Country: None (occurrence: None)
  Receive Date: 20110421
  Receipt Date: 20110421
  Transmission Date: 20111010
  Serious: Yes (Life-Threatening)
  Sender: FDA-Public Use
  Company Number: None

PATIENT
  Sex: Female

DRUGS (2)
  1. PAROXETINE HCL [Suspect]
  2. PAROXETINE HCL [Suspect]
     Indication: DEPRESSION
     Dosage: 12.5MG DAILY PO
     Route: 048
     Dates: start: 20110401, end: 20110420

REACTIONS (3)
  - SUICIDAL IDEATION [None]
  - ABNORMAL BEHAVIOUR [None]
  - PRODUCT SUBSTITUTION ISSUE [None]
